FAERS Safety Report 12439075 (Version 1)
Quarter: 2016Q2

REPORT INFORMATION
  Report Type: Report from Study
  Country: US (occurrence: US)
  Receive Date: 20160606
  Receipt Date: 20160606
  Transmission Date: 20160815
  Serious: Yes (Hospitalization)
  Sender: FDA-Public Use
  Company Number: US-BIOGEN-2016BI00243410

PATIENT
  Sex: Female

DRUGS (1)
  1. TYSABRI [Suspect]
     Active Substance: NATALIZUMAB
     Indication: MULTIPLE SCLEROSIS
     Route: 042
     Dates: start: 20160401

REACTIONS (5)
  - Bronchitis [Unknown]
  - Consciousness fluctuating [Unknown]
  - Musculoskeletal disorder [Unknown]
  - General symptom [Unknown]
  - Memory impairment [Unknown]
